FAERS Safety Report 4423323-9 (Version None)
Quarter: 2004Q3

REPORT INFORMATION
  Report Type: 
  Country: None (occurrence: None)
  Receive Date: 20040805
  Receipt Date: 20040729
  Transmission Date: 20050211
  Serious: Yes (Other)
  Sender: FDA-Public Use
  Company Number: 2004225755US

PATIENT
  Age: 75 Year
  Sex: Female

DRUGS (5)
  1. BEXTRA [Suspect]
     Dosage: 20 MG
  2. ATACAND [Concomitant]
  3. ATENOLOL [Concomitant]
  4. HYDROCHLOROTHIAZIDE [Concomitant]
  5. LESCOL [Concomitant]

REACTIONS (1)
  - DEAFNESS UNILATERAL [None]
